FAERS Safety Report 13349842 (Version 1)
Quarter: 2017Q1

REPORT INFORMATION
  Report Type: Report from Study
  Country: US (occurrence: US)
  Receive Date: 20170320
  Receipt Date: 20170320
  Transmission Date: 20170429
  Serious: Yes (Other)
  Sender: FDA-Public Use
  Company Number: US-MALLINCKRODT-T201700916

PATIENT
  Sex: Female

DRUGS (1)
  1. REPOSITORY CORTICOTROPIN INJECTION [Suspect]
     Active Substance: CORTICOTROPIN
     Indication: DERMATOMYOSITIS
     Dosage: 80 UNITS / 1 ML, 1 TIME WEEKLY
     Route: 030
     Dates: start: 20170223

REACTIONS (6)
  - Pulmonary function test decreased [Not Recovered/Not Resolved]
  - Eye disorder [Recovering/Resolving]
  - Chest pain [Recovering/Resolving]
  - Headache [Not Recovered/Not Resolved]
  - Weight increased [Not Recovered/Not Resolved]
  - Road traffic accident [Recovering/Resolving]

NARRATIVE: CASE EVENT DATE: 201702
